FAERS Safety Report 4564883-7 (Version None)
Quarter: 2005Q1

REPORT INFORMATION
  Report Type: 
  Country: None (occurrence: None)
  Receive Date: 20050128
  Receipt Date: 20050124
  Transmission Date: 20050727
  Serious: Yes (Other)
  Sender: FDA-Public Use
  Company Number: DE-MERCK-0501DEU00239

PATIENT
  Age: 72 Year
  Sex: Female
  Weight: 62 kg

DRUGS (12)
  1. PRIMAXIN [Suspect]
     Indication: SEPSIS
     Route: 042
     Dates: start: 20040914, end: 20040921
  2. FLUCONAZOLE [Concomitant]
     Indication: CHOLANGITIS
     Route: 042
     Dates: start: 20040914, end: 20040921
  3. FLUCONAZOLE [Concomitant]
     Indication: PERITONITIS
     Route: 042
     Dates: start: 20040914, end: 20040921
  4. NOREPINEPHRINE HYDROCHLORIDE [Concomitant]
     Route: 065
  5. FUROSEMIDE [Concomitant]
     Route: 065
  6. DIGITOXIN [Concomitant]
     Route: 065
  7. TROMETHAMINE [Concomitant]
     Route: 065
  8. SODIUM BICARBONATE [Concomitant]
     Route: 065
  9. PIRITRAMIDE [Concomitant]
     Route: 065
  10. CERTOPARIN SODIUM [Concomitant]
     Route: 065
  11. PANTOPRAZOLE SODIUM [Concomitant]
     Route: 065
  12. PREDNISOLONE HEMISUCCINATE [Concomitant]
     Route: 065

REACTIONS (1)
  - EXANTHEM [None]
